FAERS Safety Report 7897596-4 (Version None)
Quarter: 2011Q4

REPORT INFORMATION
  Report Type: 
  Country: None (occurrence: None)
  Receive Date: 20111107
  Receipt Date: 20111028
  Transmission Date: 20120403
  Serious: Yes (Death)
  Sender: FDA-Public Use
  Company Number: JP-EISAI INC-E7389-01694-SPO-JP

PATIENT
  Age: 58 Year
  Sex: Female
  Weight: 51 kg

DRUGS (4)
  1. HALAVEN [Suspect]
     Indication: BREAST CANCER RECURRENT
     Route: 042
     Dates: start: 20111003, end: 20111003
  2. HALAVEN [Suspect]
     Indication: METASTASES TO LUNG
  3. HALAVEN [Suspect]
     Indication: METASTASES TO LYMPH NODES
  4. HALAVEN [Suspect]
     Indication: METASTASES TO BONE

REACTIONS (1)
  - RESPIRATORY FAILURE [None]
